FAERS Safety Report 8374320-2 (Version None)
Quarter: 2012Q2

REPORT INFORMATION
  Report Type: 
  Country: None (occurrence: None)
  Receive Date: 20120518
  Receipt Date: 20120518
  Transmission Date: 20120825
  Serious: No
  Sender: FDA-Public Use
  Company Number: None

PATIENT
  Sex: Female
  Weight: 86.1834 kg

DRUGS (1)
  1. CYMBALTA [Suspect]
     Indication: FIBROMYALGIA

REACTIONS (13)
  - INSOMNIA [None]
  - FEELING OF BODY TEMPERATURE CHANGE [None]
  - IRRITABILITY [None]
  - ANGER [None]
  - IMPAIRED WORK ABILITY [None]
  - NAUSEA [None]
  - THIRST [None]
  - HYPOAESTHESIA [None]
  - MOOD SWINGS [None]
  - HYPERHIDROSIS [None]
  - NIGHTMARE [None]
  - POOR PERIPHERAL CIRCULATION [None]
  - DIARRHOEA [None]
